FAERS Safety Report 17159299 (Version 1)
Quarter: 2019Q4

REPORT INFORMATION
  Report Type: Spontaneous
  Country: US (occurrence: US)
  Receive Date: 20191215
  Receipt Date: 20191215
  Transmission Date: 20200122
  Serious: Yes (Hospitalization)
  Sender: FDA-Public Use
  Company Number: None

PATIENT
  Age: 82 Year
  Sex: Female
  Weight: 77.2 kg

DRUGS (8)
  1. ASPIRIN. [Suspect]
     Active Substance: ASPIRIN
     Route: 048
  2. APIXABAN [Suspect]
     Active Substance: APIXABAN
     Indication: ATRIAL FIBRILLATION
     Route: 048
     Dates: start: 20150413
  3. FUROSEMIDE 20MG DAILY [Concomitant]
  4. ATORVASTATIN 10MG DAILY [Concomitant]
     Active Substance: ATORVASTATIN
  5. SPIRONOLACTONE 25MG DAILY [Concomitant]
  6. LISINOPRIL 20MG DAILY [Concomitant]
  7. NITROFURANTOIN 50MG BID [Concomitant]
  8. SULFAMETHOXAZOLE/TRIMETHOPRIM 800/160MG BID [Concomitant]

REACTIONS (1)
  - Gastrointestinal haemorrhage [None]

NARRATIVE: CASE EVENT DATE: 20150416
